FAERS Safety Report 4359108-1 (Version None)
Quarter: 2004Q2

REPORT INFORMATION
  Report Type: 
  Country: None (occurrence: None)
  Receive Date: 20040514
  Receipt Date: 20040505
  Transmission Date: 20050107
  Serious: Yes (Hospitalization)
  Sender: FDA-Public Use
  Company Number: 2004030660

PATIENT
  Sex: Male

DRUGS (3)
  1. DRAMAMINE-D TAB [Suspect]
     Indication: DEPENDENCE
     Dosage: 3 BOXES TO 1 BOX (QUANTITY UNSPEC.) QD, ORAL
     Route: 048
  2. CODEINE CAMSILATE (CODEINE CAMSILATE) [Suspect]
     Indication: DEPENDENCE
     Dates: end: 20040401
  3. ZUCLOPENTHIXOL DECONOATE (ZUCLOPENTHIXOL DECONOATE) [Concomitant]

REACTIONS (4)
  - DEPENDENCE [None]
  - EXTRAPYRAMIDAL DISORDER [None]
  - HEPATIC FAILURE [None]
  - OVERDOSE [None]
